FAERS Safety Report 11780979 (Version 1)
Quarter: 2015Q4

REPORT INFORMATION
  Report Type: Spontaneous
  Country: US (occurrence: US)
  Receive Date: 20151126
  Receipt Date: 20151126
  Transmission Date: 20160305
  Serious: No
  Sender: FDA-Public Use
  Company Number: US-JNJFOC-20151113302

PATIENT
  Age: 14 Year
  Sex: Male
  Weight: 56.7 kg

DRUGS (8)
  1. ZYRTEC 10MG IR TABLET [Suspect]
     Active Substance: CETIRIZINE HYDROCHLORIDE
     Indication: SEASONAL ALLERGY
     Dosage: 1 TABLET, 1X PER DAY
     Route: 048
     Dates: start: 20151018, end: 20151025
  2. FOCALIN [Interacting]
     Active Substance: DEXMETHYLPHENIDATE HYDROCHLORIDE
     Indication: ATTENTION DEFICIT/HYPERACTIVITY DISORDER
     Dosage: 1 TAB ONCE EVERY MORNING FOR 2+YEARS
     Route: 065
  3. NASONEX [Interacting]
     Active Substance: MOMETASONE FUROATE
     Indication: MULTIPLE ALLERGIES
     Dosage: 1 SQ/1X QD BILAT AS NEEDED
     Route: 065
  4. MELATONIN [Interacting]
     Active Substance: MELATONIN
     Indication: INSOMNIA
     Dosage: 2 TABS/1X QD HS 1 YEAR
     Route: 065
  5. ZYRTEC 10MG IR TABLET [Suspect]
     Active Substance: CETIRIZINE HYDROCHLORIDE
     Route: 048
  6. LEXAPRO [Interacting]
     Active Substance: ESCITALOPRAM OXALATE
     Indication: DEPRESSION
     Dosage: 1 TAB ONCE QD AM FOR 2 YEARS
     Route: 065
  7. SINGULAIR [Interacting]
     Active Substance: MONTELUKAST SODIUM
     Indication: ASTHMA
     Dosage: 1 TAB/1X QD HS 3-4 YEARS
     Route: 065
  8. RITALIN [Interacting]
     Active Substance: METHYLPHENIDATE HYDROCHLORIDE
     Indication: ATTENTION DEFICIT/HYPERACTIVITY DISORDER
     Dosage: 1 TAB/1X QD AFTERNOON (1 YEARS)
     Route: 065

REACTIONS (2)
  - Psychomotor hyperactivity [Recovered/Resolved]
  - Drug interaction [Recovered/Resolved]

NARRATIVE: CASE EVENT DATE: 20151018
